FAERS Safety Report 4543964-8 (Version None)
Quarter: 2005Q1

REPORT INFORMATION
  Report Type: 
  Country: None (occurrence: None)
  Receive Date: 20050104
  Receipt Date: 20041229
  Transmission Date: 20050727
  Serious: Yes (Death)
  Sender: FDA-Public Use
  Company Number: 200414894FR

PATIENT
  Age: 82 Year
  Sex: Female

DRUGS (14)
  1. RIFADIN [Suspect]
     Indication: BRONCHOPNEUMONIA
     Route: 042
     Dates: start: 20041015, end: 20041128
  2. RIFADIN [Suspect]
     Indication: SUPERINFECTION
     Route: 042
     Dates: start: 20041015, end: 20041128
  3. AUGMENTIN '200' [Suspect]
     Indication: BRONCHOPNEUMONIA
     Route: 042
     Dates: end: 20041109
  4. AUGMENTIN '200' [Suspect]
     Indication: SUPERINFECTION
     Route: 042
     Dates: end: 20041109
  5. VANCOMYCIN [Suspect]
     Indication: IMPLANT SITE INFECTION
     Route: 042
     Dates: start: 20041015, end: 20041128
  6. VANCOMYCIN [Suspect]
     Indication: STAPHYLOCOCCAL INFECTION
     Route: 042
     Dates: start: 20041015, end: 20041128
  7. LOVENOX [Concomitant]
     Dates: start: 20040101
  8. LASILIX [Concomitant]
     Dates: start: 20040101
  9. MORPHINE [Concomitant]
     Dates: start: 20040101
  10. ACETAMINOPHEN [Concomitant]
     Dates: start: 20040101
  11. STABLON [Concomitant]
  12. APROVEL [Concomitant]
  13. COZAAR [Concomitant]
     Dates: start: 20040101
  14. FORLAX [Concomitant]

REACTIONS (1)
  - RASH ERYTHEMATOUS [None]
